FAERS Safety Report 17550585 (Version 1)
Quarter: 2020Q1

REPORT INFORMATION
  Report Type: Spontaneous
  Country: US (occurrence: US)
  Receive Date: 20200317
  Receipt Date: 20200317
  Transmission Date: 20200409
  Serious: Yes (Disabling)
  Sender: FDA-Public Use
  Company Number: None

PATIENT
  Age: 39 Year
  Sex: Female
  Weight: 73.8 kg

DRUGS (6)
  1. PROTONIX [Concomitant]
     Active Substance: PANTOPRAZOLE SODIUM
  2. PROSAZIN [Concomitant]
  3. LAMICTAL [Concomitant]
     Active Substance: LAMOTRIGINE
  4. TYLENOL [Concomitant]
     Active Substance: ACETAMINOPHEN
  5. L-METHYLFOLATE [Concomitant]
     Active Substance: LEVOMEFOLIC ACID
  6. CITALOPRAM [Suspect]
     Active Substance: CITALOPRAM HYDROBROMIDE
     Indication: DEPRESSION
     Dosage: ?          QUANTITY:90 TABLET(S);?
     Route: 048
     Dates: start: 20190501

REACTIONS (7)
  - Dizziness [None]
  - Dyskinesia [None]
  - Vertigo [None]
  - Vision blurred [None]
  - Hyperacusis [None]
  - Tinnitus [None]
  - Withdrawal syndrome [None]

NARRATIVE: CASE EVENT DATE: 20200317
